FAERS Safety Report 6752152-6 (Version None)
Quarter: 2010Q2

REPORT INFORMATION
  Report Type: 
  Country: None (occurrence: None)
  Receive Date: 20100601
  Receipt Date: 20100601
  Transmission Date: 20101027
  Serious: Yes (Other)
  Sender: FDA-Public Use
  Company Number: None

PATIENT
  Sex: Male

DRUGS (4)
  1. FLUOXETINE [Suspect]
     Indication: DEPRESSION
     Dosage: 40MG ONCE DAILY ORAL
     Route: 048
  2. FLUOXETINE [Suspect]
     Indication: DISABILITY
     Dosage: 40MG ONCE DAILY ORAL
     Route: 048
  3. FLUOXETINE [Suspect]
     Indication: LOSS OF EMPLOYMENT
     Dosage: 40MG ONCE DAILY ORAL
     Route: 048
  4. FLUOXETINE [Suspect]
     Indication: PAIN
     Dosage: 40MG ONCE DAILY ORAL
     Route: 048

REACTIONS (19)
  - ABDOMINAL DISTENSION [None]
  - ABNORMAL BEHAVIOUR [None]
  - ACTIVITIES OF DAILY LIVING IMPAIRED [None]
  - ASTHENIA [None]
  - CONFUSIONAL STATE [None]
  - ERUCTATION [None]
  - FATIGUE [None]
  - HEADACHE [None]
  - INFLUENZA LIKE ILLNESS [None]
  - MOVEMENT DISORDER [None]
  - MYALGIA [None]
  - NAUSEA [None]
  - PANIC ATTACK [None]
  - PARAESTHESIA [None]
  - RETCHING [None]
  - TENSION [None]
  - TREMOR [None]
  - UNEVALUABLE EVENT [None]
  - WITHDRAWAL SYNDROME [None]
